FAERS Safety Report 19091850 (Version 1)
Quarter: 2021Q2

REPORT INFORMATION
  Report Type: Spontaneous
  Country: US (occurrence: US)
  Receive Date: 20210405
  Receipt Date: 20210405
  Transmission Date: 20210717
  Serious: Yes (Hospitalization)
  Sender: FDA-Public Use
  Company Number: None

PATIENT
  Age: 71 Year
  Sex: Male
  Weight: 147 kg

DRUGS (2)
  1. SEMAGLUTIDE (SEMAGLUTIDE 1MG/0.75ML INJ, SOLN, PEN 1.5ML [Suspect]
     Active Substance: SEMAGLUTIDE
     Indication: BILE DUCT ADENOCARCINOMA
     Route: 058
     Dates: start: 20200121, end: 20210102
  2. SEMAGLUTIDE (SEMAGLUTIDE 1MG/0.75ML INJ, SOLN, PEN 1.5ML [Suspect]
     Active Substance: SEMAGLUTIDE
     Indication: ADENOCARCINOMA PANCREAS
     Route: 058
     Dates: start: 20200121, end: 20210102

REACTIONS (3)
  - Gastrointestinal haemorrhage [None]
  - Pancreatic mass [None]
  - Cholecystitis [None]

NARRATIVE: CASE EVENT DATE: 20200911
